FAERS Safety Report 6706260-6 (Version None)
Quarter: 2010Q2

REPORT INFORMATION
  Report Type: 
  Country: None (occurrence: None)
  Receive Date: 20100430
  Receipt Date: 20100430
  Transmission Date: 20101027
  Serious: Yes (Hospitalization)
  Sender: FDA-Public Use
  Company Number: None

PATIENT
  Sex: Male
  Weight: 95.5 kg

DRUGS (3)
  1. ZOMETA [Suspect]
     Dosage: 4 MG
  2. DECADRON [Concomitant]
  3. REVLIMID [Concomitant]

REACTIONS (4)
  - LUNG HYPERINFLATION [None]
  - LUNG INFILTRATION [None]
  - OEDEMA PERIPHERAL [None]
  - PULMONARY EMBOLISM [None]
